FAERS Safety Report 9904026 (Version 1)
Quarter: 2014Q1

REPORT INFORMATION
  Report Type: Spontaneous
  Country: US (occurrence: US)
  Receive Date: 20140218
  Receipt Date: 20140218
  Transmission Date: 20141002
  Serious: No
  Sender: FDA-Public Use
  Company Number: US-BIOGENIDEC-2014BI012309

PATIENT
  Age: 48 Year
  Sex: Male

DRUGS (12)
  1. TECFIDERA [Suspect]
     Indication: MULTIPLE SCLEROSIS
     Route: 048
     Dates: start: 20131101
  2. SYNTHROID [Concomitant]
  3. AMLODIPINE [Concomitant]
  4. LISINOPRIL [Concomitant]
  5. RISPERIDONE [Concomitant]
  6. FUROSEMIDE [Concomitant]
  7. PROPRANOLOL [Concomitant]
  8. LAMICTAL [Concomitant]
  9. DEPAKOTE [Concomitant]
  10. BABY ASPIRIN [Concomitant]
  11. VITAMIN B COMPLEX [Concomitant]
  12. VITAMIN C [Concomitant]

REACTIONS (1)
  - Nasopharyngitis [Unknown]
